FAERS Safety Report 5448466-2 (Version None)
Quarter: 2007Q3

REPORT INFORMATION
  Report Type: 
  Country: None (occurrence: None)
  Receive Date: 20070911
  Receipt Date: 20070905
  Transmission Date: 20080115
  Serious: Yes (Death, Life-Threatening)
  Sender: FDA-Public Use
  Company Number: US-BAXTER-2007BH007501

PATIENT
  Age: 76 Year
  Sex: Male
  Weight: 62 kg

DRUGS (8)
  1. FEIBA VH IMMUNO [Suspect]
     Indication: POST PROCEDURAL HAEMORRHAGE
     Dosage: DOSE UNIT:UNITS PER KILOGRAM
     Route: 065
  2. AMINOCAPROIC ACID [Concomitant]
     Indication: POST PROCEDURAL HAEMORRHAGE
     Route: 065
  3. AMINOCAPROIC ACID [Concomitant]
     Route: 065
  4. HEPARIN [Concomitant]
     Indication: DRUG USE FOR UNKNOWN INDICATION
     Route: 065
  5. PROTAMINE SULFATE [Concomitant]
     Indication: DRUG USE FOR UNKNOWN INDICATION
     Route: 065
  6. DESMOPRESSIN ACETATE [Concomitant]
     Indication: DRUG USE FOR UNKNOWN INDICATION
     Route: 042
  7. DOPAMINE HCL [Concomitant]
     Indication: DRUG USE FOR UNKNOWN INDICATION
     Route: 065
  8. EPINEPHRINE [Concomitant]
     Indication: DRUG USE FOR UNKNOWN INDICATION
     Route: 065

REACTIONS (2)
  - HYPOTENSION [None]
  - INTRACARDIAC THROMBUS [None]
